FAERS Safety Report 7669971-4 (Version None)
Quarter: 2011Q3

REPORT INFORMATION
  Report Type: 
  Country: None (occurrence: None)
  Receive Date: 20110808
  Receipt Date: 20110804
  Transmission Date: 20111222
  Serious: Yes (Death, Other)
  Sender: FDA-Public Use
  Company Number: PHHY2011IN69707

PATIENT
  Age: 47 Year
  Sex: Female

DRUGS (6)
  1. PACLITAXEL [Suspect]
     Indication: BREAST CANCER
     Dosage: UNK UKN, UNK
     Route: 048
  2. CYCLOPHOSPHAMIDE [Suspect]
     Indication: BREAST CANCER
     Dosage: UNK UKN, UNK
  3. EPIRUBICIN [Suspect]
     Indication: BREAST CANCER
     Dosage: UNK UKN, UNK
  4. RADIOTHERAPY [Suspect]
     Indication: BREAST CANCER
     Dosage: 15 GY IN 25 FRACTIONS
  5. TAMOXIFEN CITRATE [Suspect]
     Indication: BREAST CANCER
     Dosage: UNK UKN, UNK
  6. FLUOROURACIL [Suspect]
     Indication: BREAST CANCER
     Dosage: UNK UKN, UNK

REACTIONS (4)
  - DEATH [None]
  - MYELODYSPLASTIC SYNDROME [None]
  - DIZZINESS [None]
  - ASTHENIA [None]
